FAERS Safety Report 10632148 (Version 1)
Quarter: 2014Q4

REPORT INFORMATION
  Report Type: Spontaneous
  Country: US (occurrence: US)
  Receive Date: 20141205
  Receipt Date: 20141205
  Transmission Date: 20150529
  Serious: No
  Sender: FDA-Public Use
  Company Number: US-BRISTOL-MYERS SQUIBB COMPANY-21417357

PATIENT
  Age: 59 Year
  Sex: Female

DRUGS (1)
  1. BYDUREON [Suspect]
     Active Substance: EXENATIDE
     Dosage: ONGOING
     Route: 058
     Dates: start: 2013

REACTIONS (3)
  - Injection site erythema [Unknown]
  - Urticaria [Unknown]
  - Injection site nodule [Unknown]

NARRATIVE: CASE EVENT DATE: 2014
